FAERS Safety Report 16703522 (Version 1)
Quarter: 2019Q3

REPORT INFORMATION
  Report Type: Spontaneous
  Country: NL (occurrence: NL)
  Receive Date: 20190814
  Receipt Date: 20190814
  Transmission Date: 20191004
  Serious: Yes (Hospitalization)
  Sender: FDA-Public Use
  Company Number: PHHY2019NL186816

PATIENT
  Age: 70 Year
  Sex: Female
  Weight: 63 kg

DRUGS (1)
  1. AMOXICILLIN. [Suspect]
     Active Substance: AMOXICILLIN
     Indication: PNEUMONIA
     Dosage: 500 MG, TID (3 X 500 MG)
     Route: 065
     Dates: start: 20160929, end: 20161004

REACTIONS (3)
  - Insomnia [Recovered/Resolved]
  - Mania [Recovered/Resolved]
  - Diarrhoea [Recovered/Resolved]

NARRATIVE: CASE EVENT DATE: 20161004
